FAERS Safety Report 4890703-7 (Version None)
Quarter: 2006Q1

REPORT INFORMATION
  Report Type: 
  Country: None (occurrence: None)
  Receive Date: 20060125
  Receipt Date: 20030424
  Transmission Date: 20060701
  Serious: Yes (Other)
  Sender: FDA-Public Use
  Company Number: US-BRISTOL-MYERS SQUIBB COMPANY-12253043

PATIENT
  Age: 39 Year
  Sex: Female

DRUGS (13)
  1. STADOL [Suspect]
     Indication: MIGRAINE
     Route: 045
     Dates: start: 19930609, end: 19980201
  2. AMITRIPTYLINE HCL [Concomitant]
  3. LORCET-HD [Concomitant]
  4. ACETAMINOPHEN + CODEINE [Concomitant]
  5. PREDNISONE [Concomitant]
  6. DIAZEPAM [Concomitant]
  7. ACETAMINOPHEN W/ PROPOXYPHENE HCL [Concomitant]
  8. IBUPROFEN [Concomitant]
  9. CYCLOBENZAPRINE HCL [Concomitant]
  10. DEPAKOTE [Concomitant]
  11. ULTRAM [Concomitant]
  12. NAPROSYN [Concomitant]
  13. OXYCODONE HCL + ACETAMINOPHEN [Concomitant]

REACTIONS (1)
  - DEPENDENCE [None]
